FAERS Safety Report 7783070-2 (Version None)
Quarter: 2011Q3

REPORT INFORMATION
  Report Type: 
  Country: None (occurrence: None)
  Receive Date: 20110928
  Receipt Date: 20110922
  Transmission Date: 20111222
  Serious: Yes (Other)
  Sender: FDA-Public Use
  Company Number: US-PFIZER INC-2011226561

PATIENT
  Sex: Male
  Weight: 125 kg

DRUGS (2)
  1. LISINOPRIL [Interacting]
     Indication: HYPERTENSION
     Dosage: UNK, 1X/DAY
     Route: 048
     Dates: end: 20110920
  2. PRISTIQ [Suspect]
     Indication: DEPRESSION
     Dosage: UNK, 1X/DAY
     Route: 048
     Dates: start: 20110601

REACTIONS (14)
  - DIZZINESS [None]
  - NAUSEA [None]
  - HYPERHIDROSIS [None]
  - DEPRESSION [None]
  - AGGRESSION [None]
  - PRESYNCOPE [None]
  - ARTHRALGIA [None]
  - DEHYDRATION [None]
  - ANXIETY [None]
  - IRRITABILITY [None]
  - ANGER [None]
  - AGITATION [None]
  - DRUG INTERACTION [None]
  - MYALGIA [None]
